FAERS Safety Report 7678372-4 (Version None)
Quarter: 2011Q3

REPORT INFORMATION
  Report Type: 
  Country: None (occurrence: None)
  Receive Date: 20110811
  Receipt Date: 20110808
  Transmission Date: 20111222
  Serious: Yes (Hospitalization, Other)
  Sender: FDA-Public Use
  Company Number: RO-ABBOTT-11P-135-0734863-00

PATIENT
  Sex: Female
  Weight: 70 kg

DRUGS (3)
  1. METHOTREXATE [Concomitant]
     Indication: RHEUMATOID ARTHRITIS
     Dates: start: 20070101
  2. HUMIRA [Suspect]
     Indication: RHEUMATOID ARTHRITIS
     Dates: start: 20100106, end: 20110601
  3. SULFASALAZINE [Concomitant]
     Indication: RHEUMATOID ARTHRITIS
     Dates: start: 20070101

REACTIONS (7)
  - LYMPH NODE TUBERCULOSIS [None]
  - LUNG NEOPLASM [None]
  - SPLEEN DISORDER [None]
  - ARTHRALGIA [None]
  - MYALGIA [None]
  - PYREXIA [None]
  - LYMPHADENOPATHY [None]
